FAERS Safety Report 14910113 (Version 1)
Quarter: 2018Q2

REPORT INFORMATION
  Report Type: Spontaneous
  Country: GB (occurrence: GB)
  Receive Date: 20180517
  Receipt Date: 20180517
  Transmission Date: 20180711
  Serious: Yes (Other)
  Sender: FDA-Public Use
  Company Number: GB-TEVA-2018-GB-891799

PATIENT

DRUGS (1)
  1. G-CSF (TEVAGRASTIM/RATIOGRASTIM) [Suspect]
     Active Substance: FILGRASTIM
     Route: 065

REACTIONS (1)
  - Acute myeloid leukaemia [Unknown]
